FAERS Safety Report 10211723 (Version 1)
Quarter: 2014Q2

REPORT INFORMATION
  Report Type: Spontaneous
  Country: US (occurrence: US)
  Receive Date: 20140602
  Receipt Date: 20140602
  Transmission Date: 20141212
  Serious: Yes (Hospitalization)
  Sender: FDA-Public Use
  Company Number: US-ALKERMES INC.-ALK-2014-002998

PATIENT
  Sex: 0

DRUGS (1)
  1. VIVITROL [Suspect]
     Indication: DRUG DEPENDENCE
     Dosage: 380 MG, UNK
     Route: 030

REACTIONS (2)
  - Psychotic disorder [Unknown]
  - Drug abuse [Unknown]
